FAERS Safety Report 5884614-8 (Version None)
Quarter: 2008Q3

REPORT INFORMATION
  Report Type: 
  Country: None (occurrence: None)
  Receive Date: 20080915
  Receipt Date: 20080915
  Transmission Date: 20090109
  Serious: No
  Sender: FDA-Public Use
  Company Number: None

PATIENT
  Age: 54 Year
  Sex: Female
  Weight: 58.514 kg

DRUGS (2)
  1. PROQUIN XR [Suspect]
     Indication: URINARY TRACT INFECTION
     Dosage: I THINK IT WAS 500MG 1 A DAY FOR 3 DAYS
     Dates: start: 20080527, end: 20080530
  2. PROQUIN XR [Suspect]
     Indication: URINARY TRACT INFECTION
     Dates: start: 20080713, end: 20080716

REACTIONS (9)
  - ARTHROPATHY [None]
  - DRY EYE [None]
  - HYPOAESTHESIA [None]
  - ILL-DEFINED DISORDER [None]
  - MUSCLE SPASMS [None]
  - PAIN [None]
  - PAIN IN EXTREMITY [None]
  - PARAESTHESIA [None]
  - PRURITUS [None]
